FAERS Safety Report 9102619 (Version 1)
Quarter: 2013Q1

REPORT INFORMATION
  Report Type: Spontaneous
  Country: US (occurrence: US)
  Receive Date: 20130219
  Receipt Date: 20130219
  Transmission Date: 20140127
  Serious: Yes (Hospitalization)
  Sender: FDA-Public Use
  Company Number: US-PFIZER INC-2013061154

PATIENT
  Sex: 0

DRUGS (1)
  1. ZOLOFT [Suspect]
     Dosage: UNK

REACTIONS (6)
  - Withdrawal syndrome [Unknown]
  - Disorientation [Unknown]
  - Vertigo [Unknown]
  - Feeling abnormal [Unknown]
  - Mood swings [Unknown]
  - Crying [Unknown]
